FAERS Safety Report 9144233 (Version 1)
Quarter: 2013Q1

REPORT INFORMATION
  Report Type: Spontaneous
  Country: ES (occurrence: ES)
  Receive Date: 20130306
  Receipt Date: 20130306
  Transmission Date: 20140127
  Serious: Yes (Death, Other)
  Sender: FDA-Public Use
  Company Number: PHHY2013ES021729

PATIENT
  Age: 54 Year
  Sex: Male

DRUGS (2)
  1. CARBOPLATINO [Suspect]
     Indication: LUNG NEOPLASM MALIGNANT
     Dosage: 286 MG, EVERY 21 DAYS
     Route: 042
     Dates: start: 20130118, end: 20130118
  2. ALIMTA [Suspect]
     Indication: LUNG NEOPLASM MALIGNANT
     Dosage: 500 MG, EVERY 21 DAYS
     Route: 042
     Dates: start: 20130118, end: 20130118

REACTIONS (9)
  - Renal failure acute [Fatal]
  - Hyperkalaemia [Not Recovered/Not Resolved]
  - Hyponatraemia [Not Recovered/Not Resolved]
  - Thrombocytopenia [Recovered/Resolved]
  - Anaemia [Not Recovered/Not Resolved]
  - Neutropenia [Not Recovered/Not Resolved]
  - Mucosal inflammation [None]
  - Chest pain [None]
  - Fatigue [None]
